FAERS Safety Report 13917530 (Version 2)
Quarter: 2017Q4

REPORT INFORMATION
  Report Type: Spontaneous
  Country: US (occurrence: US)
  Receive Date: 20170829
  Receipt Date: 20171002
  Transmission Date: 20180320
  Serious: No
  Sender: FDA-Public Use
  Company Number: PHEH2017US027194

PATIENT
  Age: 14 Year
  Sex: Male

DRUGS (1)
  1. DORZOLAMIDE HCL [Suspect]
     Active Substance: DORZOLAMIDE HYDROCHLORIDE
     Indication: USHER^S SYNDROME
     Dosage: 1 GTT, TID
     Route: 047

REACTIONS (2)
  - Overdose [Unknown]
  - Product quality issue [Unknown]
